FAERS Safety Report 10244106 (Version 1)
Quarter: 2014Q2

REPORT INFORMATION
  Report Type: Report from Study
  Country: FR (occurrence: FR)
  Receive Date: 20140618
  Receipt Date: 20140618
  Transmission Date: 20141212
  Serious: Yes (Hospitalization)
  Sender: FDA-Public Use
  Company Number: PHHO2014FR008565

PATIENT
  Sex: 0

DRUGS (3)
  1. NEORAL [Suspect]
     Indication: RENAL TRANSPLANT
     Dosage: UNK
     Route: 002
     Dates: start: 20130314
  2. CELLCEPT [Suspect]
     Indication: RENAL TRANSPLANT
     Dosage: 1500 MG, QD
     Route: 002
     Dates: start: 20130313
  3. SOLUPRED [Suspect]
     Indication: RENAL TRANSPLANT
     Dosage: 7.5 MG, QD
     Route: 002
     Dates: start: 20130314

REACTIONS (2)
  - General physical health deterioration [Recovered/Resolved]
  - Cytomegalovirus infection [Not Recovered/Not Resolved]
